FAERS Safety Report 20689011 (Version 1)
Quarter: 2022Q2

REPORT INFORMATION
  Report Type: Spontaneous
  Country: US (occurrence: None)
  Receive Date: 20220407
  Receipt Date: 20220407
  Transmission Date: 20220721
  Serious: Yes (Hospitalization)
  Sender: FDA-Public Use
  Company Number: None

PATIENT
  Age: 37 Year
  Sex: Female
  Weight: 75.15 kg

DRUGS (10)
  1. HIZENTRA [Suspect]
     Active Substance: HUMAN IMMUNOGLOBULIN G
     Indication: Immunodeficiency common variable
     Dosage: OTHER FREQUENCY : WEEKLY;?
     Route: 058
     Dates: start: 20220211, end: 20220324
  2. EFFEXOR XR [Concomitant]
     Active Substance: VENLAFAXINE HYDROCHLORIDE
     Dates: start: 20210325
  3. Levothyroxine Sodium 100mcg [Concomitant]
     Dates: start: 20210325
  4. MIRTAZAPINE [Concomitant]
     Active Substance: MIRTAZAPINE
     Dates: start: 20210325
  5. Phenergan 12.5mg [Concomitant]
     Dates: start: 20210325
  6. VITAMIN D3 [Concomitant]
     Active Substance: CHOLECALCIFEROL
     Dates: start: 20210706
  7. Womens Multivitamin [Concomitant]
     Dates: start: 20210706
  8. ZANAFLEX [Concomitant]
     Active Substance: TIZANIDINE HYDROCHLORIDE
     Dates: start: 20210914
  9. Memantine HCl Oral Tablet 10 MG [Concomitant]
  10. Aspirin EC Oral 81mg [Concomitant]
     Dates: start: 20220211

REACTIONS (6)
  - Headache [None]
  - Nausea [None]
  - Vomiting [None]
  - Neck pain [None]
  - Back pain [None]
  - Magnetic resonance imaging head abnormal [None]

NARRATIVE: CASE EVENT DATE: 20220324
